FAERS Safety Report 5304145-3 (Version None)
Quarter: 2007Q2

REPORT INFORMATION
  Report Type: 
  Country: None (occurrence: None)
  Receive Date: 20070423
  Receipt Date: 20070410
  Transmission Date: 20071010
  Serious: Yes (Other)
  Sender: FDA-Public Use
  Company Number: PHFR2007GB00663

PATIENT
  Sex: Male

DRUGS (3)
  1. EXELON [Suspect]
     Indication: PARKINSON'S DISEASE
     Dosage: 6 MG, BID
  2. EXELON [Suspect]
     Dosage: 4.5 MG, BID
     Route: 048
  3. EXELON [Suspect]
     Dosage: 1.5 MG, BID
     Route: 048

REACTIONS (3)
  - BALANCE DISORDER [None]
  - DIZZINESS [None]
  - FALL [None]
